FAERS Safety Report 5215037-2 (Version None)
Quarter: 2007Q1

REPORT INFORMATION
  Report Type: 
  Country: None (occurrence: None)
  Receive Date: 20070122
  Receipt Date: 20061120
  Transmission Date: 20070707
  Serious: Yes (Hospitalization, Other)
  Sender: FDA-Public Use
  Company Number: AU-PFIZER INC-2006145355

PATIENT
  Age: 78 Year
  Sex: Male

DRUGS (1)
  1. CAVERJECT IMPULSE DUAL CHAMBER SYSTEM POWDER, STERILE [Suspect]

REACTIONS (3)
  - BLOOD URINE PRESENT [None]
  - INJECTION SITE PAIN [None]
  - URINARY BLADDER HAEMORRHAGE [None]
